FAERS Safety Report 22889429 (Version 5)
Quarter: 2025Q4

REPORT INFORMATION
  Report Type: Spontaneous
  Country: CA (occurrence: CA)
  Receive Date: 20230831
  Receipt Date: 20251125
  Transmission Date: 20260117
  Serious: Yes (Other)
  Sender: PFIZER
  Company Number: CA-PFIZER INC-202300286854

PATIENT
  Age: 46 Year
  Sex: Male

DRUGS (10)
  1. METHOTREXATE SODIUM [Suspect]
     Active Substance: METHOTREXATE SODIUM
     Indication: Crohn^s disease
     Dosage: 25 MG, WEEKLY, X 8 WEEK (1DF)
     Route: 058
     Dates: start: 202301
  2. AMITRIPTYLINE HYDROCHLORIDE [Concomitant]
     Active Substance: AMITRIPTYLINE HYDROCHLORIDE
     Dosage: UNK
  3. CETUXIMAB [Concomitant]
     Active Substance: CETUXIMAB
     Dosage: 5 MG/KG, EVERY 8 WEEKS
  4. CETUXIMAB [Concomitant]
     Active Substance: CETUXIMAB
     Dosage: 10 MG/KG, EVERY 8 WEEKS
  5. FOLIC ACID [Concomitant]
     Active Substance: FOLIC ACID
     Dosage: UNK, DAILY
  6. INFLECTRA [Concomitant]
     Active Substance: INFLIXIMAB-DYYB
     Indication: Crohn^s disease
     Dosage: 5 MG/KG, Q 0,2 AND 6 WEEKS THEN Q 8 WEEKS
     Route: 042
     Dates: start: 20231003
  7. INFLECTRA [Concomitant]
     Active Substance: INFLIXIMAB-DYYB
     Dosage: 5 MG/KG, Q 0,2 AND 6 WEEKS THEN Q 8 WEEKS
     Route: 042
     Dates: start: 20240109
  8. INFLECTRA [Concomitant]
     Active Substance: INFLIXIMAB-DYYB
     Dosage: 10 MG/KG, EVERY 8 WEEKS
     Route: 042
     Dates: start: 20240304
  9. IXIFI [Concomitant]
     Active Substance: INFLIXIMAB-QBTX
     Indication: Crohn^s disease
     Dosage: 10 MG/KG, EVERY 8 WEEKS
     Route: 042
     Dates: start: 20250819
  10. WELLBUTRIN XL [Concomitant]
     Active Substance: BUPROPION HYDROCHLORIDE
     Dosage: 150 MG, FREQUENCY: UNKNOWN
     Route: 065

REACTIONS (23)
  - Haemorrhage [Unknown]
  - Anaemia [Unknown]
  - Abdominal pain [Recovered/Resolved]
  - Diarrhoea haemorrhagic [Recovered/Resolved]
  - Colitis [Unknown]
  - Fatigue [Recovering/Resolving]
  - Brain fog [Unknown]
  - Hot flush [Unknown]
  - Pyrexia [Unknown]
  - Condition aggravated [Not Recovered/Not Resolved]
  - Abdominal pain upper [Recovered/Resolved]
  - Diarrhoea [Not Recovered/Not Resolved]
  - Inflammation [Not Recovered/Not Resolved]
  - Faecal calprotectin increased [Not Recovered/Not Resolved]
  - Gastroenteritis [Recovered/Resolved]
  - Ulcer [Unknown]
  - Weight increased [Unknown]
  - Micturition urgency [Unknown]
  - Back pain [Unknown]
  - C-reactive protein increased [Unknown]
  - Off label use [Unknown]
  - Off label use [Unknown]
  - Drug ineffective for unapproved indication [Unknown]

NARRATIVE: CASE EVENT DATE: 20230101
